FAERS Safety Report 18832259 (Version 4)
Quarter: 2021Q1

REPORT INFORMATION
  Report Type: Report from Study
  Country: KR (occurrence: KR)
  Receive Date: 20210203
  Receipt Date: 20210315
  Transmission Date: 20210419
  Serious: Yes (Hospitalization, Other)
  Sender: FDA-Public Use
  Company Number: KR-CELLTRION INC.-2021KR001074

PATIENT

DRUGS (76)
  1. HERZUMA [Suspect]
     Active Substance: TRASTUZUMAB-PKRB
     Dosage: 180 MG (MAINTAIN DOSE), Q2 WEEKS
     Route: 042
     Dates: start: 20201018
  2. LEUCOVORIN [FOLINIC ACID] [Suspect]
     Active Substance: LEUCOVORIN
     Indication: BILE DUCT CANCER
     Dosage: 278 MG, Q2 WEEKS
     Route: 042
     Dates: start: 20201007
  3. LEUCOVORIN [FOLINIC ACID] [Suspect]
     Active Substance: LEUCOVORIN
     Dosage: 278 MG, Q2 WEEKS
     Route: 042
     Dates: start: 20201018
  4. 5?FU [FLUOROURACIL] [Suspect]
     Active Substance: FLUOROURACIL
     Dosage: 556 MG (BOLUS), Q2 WEEKS
     Route: 040
     Dates: start: 20201018
  5. 5?FU [FLUOROURACIL] [Suspect]
     Active Substance: FLUOROURACIL
     Dosage: 3336 MG, Q2WEEKS (INFUSION)
     Route: 042
     Dates: start: 20201018
  6. OLMETEC [Concomitant]
     Active Substance: OLMESARTAN MEDOXOMIL
     Indication: HYPERTENSION
     Dosage: 10 MG, QD
     Route: 048
     Dates: start: 2002
  7. IR CODON [Concomitant]
     Active Substance: OXYCODONE HYDROCHLORIDE
     Indication: BACK PAIN
     Dosage: 5 MG, PRN
     Route: 048
     Dates: start: 20200629
  8. IR CODON [Concomitant]
     Active Substance: OXYCODONE HYDROCHLORIDE
     Dosage: 5 MG, PRN
     Route: 048
     Dates: start: 20210128
  9. NORZYME 25000 [Concomitant]
     Indication: DYSPEPSIA
     Dosage: 457.7 MG, TID
     Route: 048
     Dates: start: 20200608
  10. TARGIN CR 20/10 [Concomitant]
     Indication: ABDOMINAL PAIN
     Dosage: 1T BID
     Route: 048
     Dates: start: 20210128
  11. DIOVAN [Concomitant]
     Active Substance: VALSARTAN
     Indication: HYPERTENSION
     Dosage: 80 MG, QD
     Route: 048
     Dates: start: 20210201
  12. HERZUMA [Suspect]
     Active Substance: TRASTUZUMAB-PKRB
     Dosage: 180 MG (MAINTAIN DOSE), Q2 WEEKS
     Route: 042
     Dates: start: 20201209
  13. HERZUMA [Suspect]
     Active Substance: TRASTUZUMAB-PKRB
     Dosage: 180 MILLIGRAM, EVERY 2 WEEKS
     Route: 042
     Dates: start: 20210106
  14. LEUCOVORIN [FOLINIC ACID] [Suspect]
     Active Substance: LEUCOVORIN
     Dosage: 278 MILLIGRAM, EVERY 2 WEEKS
     Route: 042
     Dates: start: 20210106
  15. LEUCOVORIN [FOLINIC ACID] [Suspect]
     Active Substance: LEUCOVORIN
     Dosage: 278 UNK
     Dates: start: 20210202
  16. 5?FU [FLUOROURACIL] [Suspect]
     Active Substance: FLUOROURACIL
     Dosage: 2641 MILLIGRAM, EVERY 2 WEEKS
     Route: 042
     Dates: start: 20210106
  17. LANSTON [Concomitant]
     Active Substance: LANSOPRAZOLE
     Indication: DYSPEPSIA
     Dosage: 15 MG, QD
     Route: 048
     Dates: start: 20200812
  18. ALOXI [Concomitant]
     Active Substance: PALONOSETRON HYDROCHLORIDE
     Indication: PROPHYLAXIS OF NAUSEA AND VOMITING
     Dosage: 0.25 MG, PRN
     Route: 042
     Dates: start: 20201007
  19. DEXAMETHASONE. [Concomitant]
     Active Substance: DEXAMETHASONE
     Indication: HYPERSENSITIVITY
  20. TYLENOL ER [Concomitant]
     Active Substance: ACETAMINOPHEN
     Indication: BACK PAIN
     Dosage: 650 MG, TID
     Route: 048
     Dates: start: 20201118
  21. XARELTO [Concomitant]
     Active Substance: RIVAROXABAN
     Indication: EMBOLISM
     Dosage: 20 MG, QD
     Route: 048
     Dates: start: 20201130
  22. PENIRAMIN INJ [Concomitant]
     Dosage: 4 MG, ONCE
     Route: 042
     Dates: start: 20210201, end: 20210201
  23. TAMIPOOL [Concomitant]
     Active Substance: VITAMINS
     Indication: DECREASED APPETITE
  24. OXALITIN [Suspect]
     Active Substance: OXALIPLATIN
     Dosage: 90.4 MG, Q2 WEEKS (DOSE REDUCTION)
     Route: 042
     Dates: start: 20201018
  25. 5?FU [FLUOROURACIL] [Suspect]
     Active Substance: FLUOROURACIL
     Dosage: UNK
     Dates: start: 20210106
  26. FEROBA YOU [Concomitant]
     Indication: ANAEMIA
     Dosage: 512 MG, QD
     Route: 048
     Dates: start: 20200907
  27. NASEA OD [Concomitant]
     Active Substance: RAMOSETRON HYDROCHLORIDE
     Indication: NAUSEA
     Dosage: 0.1 MG, PRN
     Route: 048
     Dates: start: 20200812
  28. TARGIN CR 10/5 [Concomitant]
     Indication: ABDOMINAL PAIN
  29. FURTMAN [Concomitant]
     Indication: ASTHENIA
     Dosage: 0.5 ML, QD
     Route: 042
     Dates: start: 20210129
  30. HERZUMA [Suspect]
     Active Substance: TRASTUZUMAB-PKRB
     Indication: BILE DUCT CANCER
     Dosage: 270 MG (INITIAL DOSE), Q2 WEEKS
     Route: 042
     Dates: start: 20201007
  31. OXALITIN [Suspect]
     Active Substance: OXALIPLATIN
     Dosage: 90.4 MG, Q2 WEEKS (DOSE REDUCTION)
     Route: 042
     Dates: start: 20201209
  32. GANAKHAN [Concomitant]
     Indication: DYSPEPSIA
     Dosage: 50 MG, TID
     Route: 048
     Dates: start: 20200608
  33. TANTUM [BENZYDAMINE HYDROCHLORIDE] [Concomitant]
     Indication: STOMATITIS
  34. TARGIN CR 20/10 [Concomitant]
     Indication: BACK PAIN
     Dosage: 1 DF, BID
     Route: 048
     Dates: start: 20201209, end: 20210124
  35. TARGIN CR 10/5 [Concomitant]
     Indication: BACK PAIN
     Dosage: 1T BID
     Route: 048
     Dates: start: 20210128
  36. COMBIFLEX [ALANINE;ARGININE;CALCIUM HYDROXIDE;GLUCOSE MONOHYDRATE;GLYC [Concomitant]
     Indication: ASTHENIA
     Dosage: 1000 ML, QD
     Route: 042
     Dates: start: 20210129
  37. COMBIFLEX [ALANINE;ARGININE;CALCIUM HYDROXIDE;GLUCOSE MONOHYDRATE;GLYC [Concomitant]
     Indication: DECREASED APPETITE
  38. 5?FU [FLUOROURACIL] [Suspect]
     Active Substance: FLUOROURACIL
     Indication: BILE DUCT CANCER
     Dosage: 556 MG (BOLUS), Q2 WEEKS
     Route: 040
     Dates: start: 20201007
  39. RAMNOS [Concomitant]
     Indication: CONSTIPATION
     Dosage: 500 MG, TID
     Route: 048
     Dates: start: 2020
  40. GASTER [Concomitant]
     Active Substance: FAMOTIDINE
     Indication: PROPHYLAXIS AGAINST GASTROINTESTINAL ULCER
     Dosage: 20 MG, PRN
     Route: 042
     Dates: start: 20201007
  41. LASIX [Concomitant]
     Active Substance: FUROSEMIDE
     Indication: GENERALISED OEDEMA
     Dosage: 40 MG, PRN
     Route: 048
     Dates: start: 20201209
  42. HERPECID OPH. OINT 3% [Concomitant]
     Indication: PROPHYLAXIS
     Dosage: 3.5 G, PRN
     Route: 061
     Dates: start: 20210106
  43. DUROGESIC D?TRANS [Concomitant]
     Active Substance: FENTANYL
     Indication: BACK PAIN
     Dosage: 12 MICROGRAM, PRN (ROUTE OF ADMINISTRATION: PATCH)
     Dates: start: 20210106
  44. DEXAMETHASONE INJ [Concomitant]
     Indication: ALLERGY PROPHYLAXIS
     Dosage: 5 MG, ONCE
     Route: 042
     Dates: start: 20210123, end: 20210123
  45. MORPHINE SULFATE. [Concomitant]
     Active Substance: MORPHINE SULFATE
     Dosage: 3 MG, PRN
     Route: 042
     Dates: start: 20210124
  46. OXALITIN [Suspect]
     Active Substance: OXALIPLATIN
     Indication: BILE DUCT CANCER
     Dosage: 118.2 MG, Q2 WEEKS
     Route: 042
     Dates: start: 20201007
  47. OXALITIN [Suspect]
     Active Substance: OXALIPLATIN
     Dosage: 90.4 UNK
     Dates: start: 20210202
  48. LEUCOVORIN [FOLINIC ACID] [Suspect]
     Active Substance: LEUCOVORIN
     Dosage: 278 MG, Q2 WEEKS
     Route: 042
     Dates: start: 20201209
  49. 5?FU [FLUOROURACIL] [Suspect]
     Active Substance: FLUOROURACIL
     Indication: BILE DUCT CANCER
     Dosage: 3336 MG, Q2WEEKS (INFUSION)
     Route: 042
     Dates: start: 20201007
  50. IR CODON [Concomitant]
     Active Substance: OXYCODONE HYDROCHLORIDE
     Dosage: 5 MG, PRN
     Route: 048
     Dates: start: 20210201
  51. STILNOX CR [Concomitant]
     Active Substance: ZOLPIDEM TARTRATE
     Indication: INSOMNIA
     Dosage: 6.25 MG, QD
     Route: 048
     Dates: start: 20200812
  52. DEXAMETHASONE. [Concomitant]
     Active Substance: DEXAMETHASONE
     Indication: PROPHYLAXIS
     Dosage: 12 MG, PRN
     Route: 042
     Dates: start: 20201007
  53. DUROGESIC D?TRANS [Concomitant]
     Active Substance: FENTANYL
     Dosage: 25 MCG
     Dates: start: 20210201
  54. PENIRAMIN INJ [Concomitant]
     Indication: ALLERGY PROPHYLAXIS
     Dosage: 4 MG, ONCE
     Route: 042
     Dates: start: 20210123, end: 20210123
  55. MEGACE F [Concomitant]
     Indication: DECREASED APPETITE
     Dosage: 10 ML, QD
     Route: 048
     Dates: start: 20210125
  56. FURTMAN [Concomitant]
     Indication: DECREASED APPETITE
  57. SUPRAX [Concomitant]
     Active Substance: CEFIXIME
     Indication: ANTITUSSIVE THERAPY
     Dosage: 100 MG, BID
     Route: 048
     Dates: start: 20210201
  58. HERZUMA [Suspect]
     Active Substance: TRASTUZUMAB-PKRB
     Dosage: 180 MG
     Dates: start: 20210202
  59. OXALITIN [Suspect]
     Active Substance: OXALIPLATIN
     Dosage: 90.4 MILLIGRAM, EVERY 2 WEEKS
     Route: 042
     Dates: start: 20210106
  60. 5?FU [FLUOROURACIL] [Suspect]
     Active Substance: FLUOROURACIL
     Dosage: 2641 MG, Q2WEEKS (INFUSION)
     Route: 042
     Dates: start: 20201209
  61. AMLODIPINE BESYLATE. [Concomitant]
     Active Substance: AMLODIPINE BESYLATE
     Indication: HYPERTENSION
     Dosage: 5 MG, QD
     Route: 048
     Dates: start: 2002
  62. DEXAMETHASONE. [Concomitant]
     Active Substance: DEXAMETHASONE
     Indication: PROPHYLAXIS
     Dosage: 8 MG, PRN
     Route: 048
     Dates: start: 20201008
  63. TANTUM [BENZYDAMINE HYDROCHLORIDE] [Concomitant]
     Indication: PROPHYLAXIS
     Dosage: 100 ML, PRN (ROUTE OF ADMONISTRATION: GARGLE)
     Dates: start: 20201008
  64. SODIUM BICARBONATE. [Concomitant]
     Active Substance: SODIUM BICARBONATE
     Indication: STOMATITIS
  65. HERPECID OPH. OINT 3% [Concomitant]
     Indication: HERPES SIMPLEX REACTIVATION
  66. TRIDOL [Concomitant]
     Active Substance: TRAMADOL HYDROCHLORIDE
     Indication: BACK PAIN
     Dosage: 50 MG, PRN
     Route: 042
     Dates: start: 20210131
  67. SOLONDO [Concomitant]
     Active Substance: PREDNISOLONE
     Indication: ALLERGY PROPHYLAXIS
     Dosage: 10 MG, ONCE
     Route: 048
     Dates: start: 20210201, end: 20210201
  68. 5?FU [FLUOROURACIL] [Suspect]
     Active Substance: FLUOROURACIL
     Dosage: 2641 MG
     Route: 042
     Dates: start: 20210202
  69. DEXAMETHASONE. [Concomitant]
     Active Substance: DEXAMETHASONE
     Indication: HYPERSENSITIVITY
  70. SODIUM BICARBONATE. [Concomitant]
     Active Substance: SODIUM BICARBONATE
     Indication: PROPHYLAXIS
     Dosage: 10 G, PRN 2020 (ROUTE OF ADMINISTRATION: GARGLE)
     Dates: start: 20201008
  71. ALDACTONE [Concomitant]
     Active Substance: SPIRONOLACTONE
     Indication: GENERALISED OEDEMA
     Dosage: 25 MG, PRN
     Route: 048
     Dates: start: 20201209
  72. TARGIN CR 20/10 [Concomitant]
     Dosage: 1T BID
     Route: 048
     Dates: start: 20210201
  73. MOKTIN [Concomitant]
     Indication: BLOOD CREATININE INCREASED
     Dosage: 600 MG, BID
     Route: 048
     Dates: start: 20210122, end: 20210123
  74. DUROGESIC D?TRANS [Concomitant]
     Active Substance: FENTANYL
     Dosage: 25 MCG
     Dates: start: 20210128
  75. MORPHINE SULFATE. [Concomitant]
     Active Substance: MORPHINE SULFATE
     Indication: BACK PAIN
     Dosage: 40 MG, QOD
     Route: 042
     Dates: start: 20210124, end: 20210128
  76. TAMIPOOL [Concomitant]
     Active Substance: VITAMINS
     Indication: ASTHENIA
     Dosage: 5 ML, QD
     Route: 042
     Dates: start: 20210129

REACTIONS (7)
  - White blood cell count decreased [Recovering/Resolving]
  - Asthenia [Not Recovered/Not Resolved]
  - Peripheral sensory neuropathy [Recovering/Resolving]
  - Spinal fracture [Recovering/Resolving]
  - Neutrophil count decreased [Recovering/Resolving]
  - Blood creatinine increased [Recovered/Resolved]
  - Off label use [Unknown]

NARRATIVE: CASE EVENT DATE: 20201018
